FAERS Safety Report 5528691-2 (Version None)
Quarter: 2007Q4

REPORT INFORMATION
  Report Type: 
  Country: None (occurrence: None)
  Receive Date: 20071113
  Receipt Date: 20070911
  Transmission Date: 20080405
  Serious: Yes (Hospitalization)
  Sender: FDA-Public Use
  Company Number: 2007-164204-NL

PATIENT
  Age: 26 Year
  Sex: Female
  Weight: 92 kg

DRUGS (2)
  1. IMPLANON [Suspect]
     Indication: CONTRACEPTION
     Dosage: SUBDERMAL
     Route: 059
     Dates: start: 20070824
  2. LITHIUM CARBONATE [Concomitant]

REACTIONS (1)
  - DEPRESSION [None]
